FAERS Safety Report 25215275 (Version 1)
Quarter: 2025Q2

REPORT INFORMATION
  Report Type: Spontaneous
  Country: FR (occurrence: FR)
  Receive Date: 20250418
  Receipt Date: 20250418
  Transmission Date: 20250716
  Serious: Yes (Life-Threatening, Hospitalization, Other)
  Sender: MYLAN
  Company Number: None

PATIENT
  Age: 64 Year
  Sex: Male

DRUGS (1)
  1. ROCURONIUM [Suspect]
     Active Substance: ROCURONIUM BROMIDE
     Indication: Induction of anaesthesia
     Dates: start: 20250221, end: 20250221

REACTIONS (3)
  - Anaphylactic shock [Recovered/Resolved]
  - Type I hypersensitivity [Recovered/Resolved]
  - Allergy alert test positive [Recovered/Resolved]

NARRATIVE: CASE EVENT DATE: 20250221
